FAERS Safety Report 23545742 (Version 2)
Quarter: 2024Q1

REPORT INFORMATION
  Report Type: Spontaneous
  Country: CZ (occurrence: CZ)
  Receive Date: 20240220
  Receipt Date: 20240301
  Transmission Date: 20240410
  Serious: Yes (Life-Threatening, Other)
  Sender: FDA-Public Use
  Company Number: CZ-B.Braun Medical Inc.-2153450

PATIENT
  Age: 42 Year
  Sex: Female

DRUGS (5)
  1. MEROPENEM [Suspect]
     Active Substance: MEROPENEM
  2. METRONIDAZOLE [Suspect]
     Active Substance: METRONIDAZOLE
  3. VORICONAZOLE [Suspect]
     Active Substance: VORICONAZOLE
  4. MOXIFLOXACIN [Suspect]
     Active Substance: MOXIFLOXACIN
  5. LEVOFLOXACIN [Suspect]
     Active Substance: LEVOFLOXACIN

REACTIONS (5)
  - Sepsis [Recovered/Resolved]
  - Respiratory acidosis [Unknown]
  - Hypoxia [Unknown]
  - Disease progression [Recovered/Resolved]
  - Respiratory failure [Unknown]
